FAERS Safety Report 17831417 (Version 1)
Quarter: 2020Q2

REPORT INFORMATION
  Report Type: Report from Study
  Country: US (occurrence: US)
  Receive Date: 20200527
  Receipt Date: 20200527
  Transmission Date: 20200714
  Serious: Yes (Other)
  Sender: FDA-Public Use
  Company Number: US-JNJFOC-20200423221

PATIENT
  Age: 27 Year
  Sex: Female

DRUGS (4)
  1. STELARA [Suspect]
     Active Substance: USTEKINUMAB
     Route: 058
  2. CYCLOBENZAPRIN [Concomitant]
     Active Substance: CYCLOBENZAPRINE
  3. STELARA [Suspect]
     Active Substance: USTEKINUMAB
     Indication: CROHN^S DISEASE
     Route: 042
  4. BUDESONIDE. [Concomitant]
     Active Substance: BUDESONIDE

REACTIONS (8)
  - Pyrexia [Unknown]
  - Drug ineffective [Unknown]
  - Eye pruritus [Unknown]
  - Crohn^s disease [Not Recovered/Not Resolved]
  - Lacrimation increased [Unknown]
  - Oropharyngeal pain [Unknown]
  - Injection site reaction [Unknown]
  - Dizziness [Recovered/Resolved]

NARRATIVE: CASE EVENT DATE: 20200508
